FAERS Safety Report 7233433-9 (Version None)
Quarter: 2011Q1

REPORT INFORMATION
  Report Type: 
  Country: None (occurrence: None)
  Receive Date: 20110110
  Receipt Date: 20110107
  Transmission Date: 20110831
  Serious: Yes (Death)
  Sender: FDA-Public Use
  Company Number: AE-111-006

PATIENT
  Age: 35 Year
  Sex: Male
  Weight: 69.4 kg

DRUGS (16)
  1. ACYCLOVIR [Concomitant]
  2. NORFLOXACIN [Concomitant]
  3. PREDNISONE [Concomitant]
  4. ALLOPURINOL [Concomitant]
  5. NYSTATIN [Concomitant]
  6. HYDROXYUREA [Concomitant]
  7. AMITRIPTYLINE HCL [Concomitant]
  8. URSODIOL [Concomitant]
  9. LIDODERM [Suspect]
     Indication: CHEMOTHERAPY
     Dosage: 2 PATCHES A DAY
  10. LIDODERM [Suspect]
     Indication: NEURALGIA
     Dosage: 2 PATCHES A DAY
  11. DAPSONE [Concomitant]
  12. SIROLIMUS [Concomitant]
  13. PREGABALIN [Concomitant]
  14. TESTOSTERONE PATCH [Concomitant]
  15. TACROLIMUS [Concomitant]
  16. POSACONAZOLE [Concomitant]

REACTIONS (10)
  - BLOOD BILIRUBIN INCREASED [None]
  - BLOOD UREA INCREASED [None]
  - ALANINE AMINOTRANSFERASE INCREASED [None]
  - THROMBOCYTOPENIA [None]
  - ASPARTATE AMINOTRANSFERASE INCREASED [None]
  - OFF LABEL USE [None]
  - NEUTROPENIA [None]
  - BLOOD CREATININE INCREASED [None]
  - VENOOCCLUSIVE LIVER DISEASE [None]
  - WEIGHT INCREASED [None]
